FAERS Safety Report 5645465-2 (Version None)
Quarter: 2008Q1

REPORT INFORMATION
  Report Type: 
  Country: None (occurrence: None)
  Receive Date: 20080229
  Receipt Date: 20070625
  Transmission Date: 20080703
  Serious: No
  Sender: FDA-Public Use
  Company Number: US-BRISTOL-MYERS SQUIBB COMPANY-13825336

PATIENT
  Sex: Female
  Weight: 42 kg

DRUGS (5)
  1. TAXOL [Suspect]
  2. ZOFRAN [Concomitant]
  3. COMPAZINE [Concomitant]
  4. BENADRYL [Concomitant]
  5. DEXAMETHASONE TAB [Concomitant]

REACTIONS (3)
  - INCORRECT DRUG ADMINISTRATION RATE [None]
  - NEUTROPHIL COUNT DECREASED [None]
  - WEIGHT DECREASED [None]
